FAERS Safety Report 10341313 (Version 7)
Quarter: 2014Q4

REPORT INFORMATION
  Report Type: Spontaneous
  Country: RS (occurrence: RS)
  Receive Date: 20140725
  Receipt Date: 20141010
  Transmission Date: 20150528
  Serious: Yes (Other)
  Sender: FDA-Public Use
  Company Number: RS-ROCHE-1440457

PATIENT
  Age: 58 Year
  Sex: Female
  Weight: 80 kg

DRUGS (7)
  1. PRONISON [Concomitant]
     Active Substance: PREDNISONE
     Indication: RHEUMATOID ARTHRITIS
     Route: 048
     Dates: start: 201207
  2. FOLAN [Concomitant]
     Active Substance: FOLIC ACID
     Indication: RHEUMATOID ARTHRITIS
     Dosage: ONE DAY AFTER METOTREXATE DOSE
     Route: 048
     Dates: start: 201207
  3. CARDIOPIRIN [Concomitant]
     Active Substance: ASPIRIN
     Indication: HYPERTENSION
     Route: 048
  4. METHOTREXATE [Concomitant]
     Active Substance: METHOTREXATE
     Indication: RHEUMATOID ARTHRITIS
     Route: 048
     Dates: start: 201207
  5. DIUNORM [Concomitant]
     Indication: HYPERTENSION
     Route: 048
  6. ALPHA D3 [Concomitant]
     Indication: RHEUMATOID ARTHRITIS
     Route: 048
  7. ACTEMRA [Suspect]
     Active Substance: TOCILIZUMAB
     Indication: RHEUMATOID ARTHRITIS
     Dosage: LAST TWELFTH CYCLE WAS ON 23/JUN/2014
     Route: 042
     Dates: start: 20130718, end: 20140623

REACTIONS (1)
  - Breast cancer [Not Recovered/Not Resolved]

NARRATIVE: CASE EVENT DATE: 20140715
